FAERS Safety Report 5509586-7 (Version None)
Quarter: 2007Q4

REPORT INFORMATION
  Report Type: 
  Country: None (occurrence: None)
  Receive Date: 20071029
  Receipt Date: 20070517
  Transmission Date: 20080405
  Serious: Yes (Other)
  Sender: FDA-Public Use
  Company Number: USEN-73AJ4L

PATIENT
  Sex: Female

DRUGS (1)
  1. DURAPREP [Suspect]
     Indication: PREOPERATIVE CARE
     Dosage: 26 ML, TOPICAL, SINGLE APPLICATION
     Route: 061

REACTIONS (1)
  - SKIN DISCOLOURATION [None]
